FAERS Safety Report 8544420-2 (Version None)
Quarter: 2012Q3

REPORT INFORMATION
  Report Type: 
  Country: None (occurrence: None)
  Receive Date: 20120727
  Receipt Date: 20120720
  Transmission Date: 20120928
  Serious: Yes (Hospitalization)
  Sender: FDA-Public Use
  Company Number: DE-GENZYME-POMP-1002330

PATIENT
  Sex: Female
  Weight: 67 kg

DRUGS (1)
  1. MYOZYME [Suspect]
     Indication: GLYCOGEN STORAGE DISEASE TYPE II
     Dosage: 20.15 MG/KG, Q2W
     Route: 042
     Dates: start: 20110907, end: 20120613

REACTIONS (2)
  - OVARIAN CANCER [None]
  - MALIGNANT PERITONEAL NEOPLASM [None]
